FAERS Safety Report 17149881 (Version 1)
Quarter: 2019Q4

REPORT INFORMATION
  Report Type: Spontaneous
  Country: US (occurrence: US)
  Receive Date: 20191120
  Receipt Date: 20191120
  Transmission Date: 20200122
  Serious: No
  Sender: FDA-Public Use
  Company Number: None

PATIENT
  Age: 93 Year
  Sex: Male

DRUGS (18)
  1. GABAPENTIN. [Concomitant]
     Active Substance: GABAPENTIN
  2. VITAMIN B12 [Concomitant]
     Active Substance: CYANOCOBALAMIN
  3. ERLEADA [Suspect]
     Active Substance: APALUTAMIDE
     Indication: PROSTATE CANCER
     Route: 048
  4. LEVOTHYROXINE. [Concomitant]
     Active Substance: LEVOTHYROXINE
  5. TRELSTAR [Concomitant]
     Active Substance: TRIPTORELIN PAMOATE
  6. AIRBORNE [Concomitant]
     Active Substance: HERBALS\MINERALS\VITAMINS
  7. FLONASE [Concomitant]
     Active Substance: FLUTICASONE PROPIONATE
  8. TAMSULOSIN [Concomitant]
     Active Substance: TAMSULOSIN
  9. CITALOPRAM [Concomitant]
     Active Substance: CITALOPRAM HYDROBROMIDE
  10. AMIODARONE [Concomitant]
     Active Substance: AMIODARONE
  11. VITAMIN D [Concomitant]
     Active Substance: VITAMIN D NOS
  12. LOSARTAN. [Concomitant]
     Active Substance: LOSARTAN
  13. XOPENEX [Concomitant]
     Active Substance: LEVALBUTEROL HYDROCHLORIDE
  14. ASPIRIN. [Concomitant]
     Active Substance: ASPIRIN
  15. CLOPIDOGREL [Concomitant]
     Active Substance: CLOPIDOGREL BISULFATE
  16. LACTULOSE. [Concomitant]
     Active Substance: LACTULOSE
  17. METOPROLOL. [Concomitant]
     Active Substance: METOPROLOL
  18. PRAVASTATIN. [Suspect]
     Active Substance: PRAVASTATIN

REACTIONS (3)
  - Contusion [None]
  - Neck pain [None]
  - Fall [None]

NARRATIVE: CASE EVENT DATE: 20191111
